FAERS Safety Report 23816025 (Version 1)
Quarter: 2024Q2

REPORT INFORMATION
  Report Type: Spontaneous
  Country: US (occurrence: None)
  Receive Date: 20240502
  Receipt Date: 20240502
  Transmission Date: 20240715
  Serious: Yes (Death)
  Sender: FDA-Public Use
  Company Number: None

PATIENT
  Age: 68 Year
  Sex: Male
  Weight: 76.05 kg

DRUGS (23)
  1. TACROLIMUS [Suspect]
     Active Substance: TACROLIMUS
     Indication: Heart transplant
     Dosage: 0.5 MG DAILY ORAL?
     Route: 048
     Dates: start: 20221111, end: 20240501
  2. TACROLIMUS [Suspect]
     Active Substance: TACROLIMUS
     Indication: Heart transplant
     Dosage: 2 MG AT BEDTIME ORAL?
     Route: 048
     Dates: start: 20221111, end: 20240501
  3. Acetaminophen 500mg tablets [Concomitant]
     Dates: start: 20240211
  4. Acetaminophen 650mg tablets [Concomitant]
     Dates: start: 20220414
  5. acyclovir 400mg tablets [Concomitant]
     Dates: start: 20230124
  6. Aspirin 81mg EC tablet [Concomitant]
     Dates: start: 20221104
  7. Atovaquone 750mg/5ml suspension [Concomitant]
     Dates: start: 20231128
  8. Bumetanide 1mg tablets [Concomitant]
     Dates: start: 20221206
  9. Calcitriol 0.25mcg capsules [Concomitant]
     Dates: start: 20230711
  10. Carvedilol 25mg tablets [Concomitant]
     Dates: start: 20220224
  11. Diltiazem ER 360mg capsules [Concomitant]
     Dates: start: 20220411
  12. DRONABINOL [Concomitant]
     Active Substance: DRONABINOL
     Dates: start: 20240211
  13. ELIQUIS [Concomitant]
     Active Substance: APIXABAN
     Dates: start: 20231128
  14. ELIQUIS [Concomitant]
     Active Substance: APIXABAN
     Dates: start: 20240211
  15. ESCITALOPRAM OXALATE [Concomitant]
     Active Substance: ESCITALOPRAM OXALATE
     Dates: start: 20220321
  16. FAMOTIDINE [Concomitant]
     Active Substance: FAMOTIDINE
     Dates: start: 20220802
  17. GABAPENTIN [Concomitant]
     Active Substance: GABAPENTIN
     Dates: start: 20221004
  18. Hydralazine 100mg capsules [Concomitant]
     Dates: start: 20231128
  19. labetolol 200mg tablets [Concomitant]
     Dates: start: 20231128
  20. multivitamin tablets [Concomitant]
     Dates: start: 20221104
  21. PREDNISONE [Concomitant]
     Active Substance: PREDNISONE
     Dates: start: 20230130
  22. rena-vite rx tablets [Concomitant]
     Dates: start: 20231128
  23. ROSUVASTATIN [Concomitant]
     Active Substance: ROSUVASTATIN
     Dates: start: 20230410

REACTIONS (1)
  - Death [None]

NARRATIVE: CASE EVENT DATE: 20240501
